FAERS Safety Report 22017242 (Version 2)
Quarter: 2023Q1

REPORT INFORMATION
  Report Type: Spontaneous
  Country: US (occurrence: US)
  Receive Date: 20230221
  Receipt Date: 20230315
  Transmission Date: 20230418
  Serious: Yes (Other)
  Sender: FDA-Public Use
  Company Number: US-BRISTOL-MYERS SQUIBB COMPANY-2023-025619

PATIENT
  Age: 44 Year
  Sex: Female

DRUGS (2)
  1. SPRYCEL [Suspect]
     Active Substance: DASATINIB
     Indication: Leukaemia
     Route: 048
     Dates: start: 20210617
  2. SPRYCEL [Suspect]
     Active Substance: DASATINIB
     Dosage: FREQUENCY: DAILY
     Route: 048
     Dates: start: 202106

REACTIONS (7)
  - Headache [Unknown]
  - Joint swelling [Unknown]
  - Anaemia [Unknown]
  - Alopecia [Unknown]
  - Gastrooesophageal reflux disease [Unknown]
  - Hernia [Unknown]
  - Thrombosis [Unknown]
